FAERS Safety Report 4806239-5 (Version None)
Quarter: 2005Q4

REPORT INFORMATION
  Report Type: 
  Country: None (occurrence: None)
  Receive Date: 20051021
  Receipt Date: 20051011
  Transmission Date: 20060501
  Serious: Yes (Hospitalization)
  Sender: FDA-Public Use
  Company Number: 2005AP05365

PATIENT
  Age: 87 Year
  Sex: Male

DRUGS (4)
  1. OMEPRAL [Suspect]
     Indication: GASTRIC ULCER
     Route: 048
     Dates: start: 20050909, end: 20051007
  2. MERISLON [Concomitant]
  3. JUVELA [Concomitant]
  4. EXCELASE [Concomitant]

REACTIONS (1)
  - RENAL FAILURE [None]
